FAERS Safety Report 7643829-9 (Version None)
Quarter: 2011Q3

REPORT INFORMATION
  Report Type: 
  Country: None (occurrence: None)
  Receive Date: 20110729
  Receipt Date: 20100406
  Transmission Date: 20111222
  Serious: No
  Sender: FDA-Public Use
  Company Number: US-GLAXOSMITHKLINE-A0854189A

PATIENT
  Sex: Female

DRUGS (11)
  1. IMITREX [Suspect]
     Indication: MIGRAINE
  2. AMOXICILLIN [Concomitant]
  3. PREVACID [Concomitant]
  4. IMITREX [Suspect]
     Indication: HEADACHE
     Dosage: 100MG UNKNOWN
     Route: 048
     Dates: start: 20081111
  5. PREMARIN [Concomitant]
  6. LORTAB [Concomitant]
  7. XANAX [Concomitant]
  8. ASPIRIN [Concomitant]
  9. PERCOCET [Concomitant]
  10. METHADONE HYDROCHLORIDE [Concomitant]
  11. AFRIN [Concomitant]

REACTIONS (5)
  - HYPOTHALAMO-PITUITARY DISORDER [None]
  - MIGRAINE [None]
  - WISDOM TEETH REMOVAL [None]
  - MALAISE [None]
  - THERAPEUTIC RESPONSE DECREASED [None]
